FAERS Safety Report 15385750 (Version 1)
Quarter: 2018Q3

REPORT INFORMATION
  Report Type: Spontaneous
  Country: US (occurrence: US)
  Receive Date: 20180907
  Receipt Date: 20180907
  Transmission Date: 20181010
  Serious: Yes (Hospitalization)
  Sender: FDA-Public Use
  Company Number: None

PATIENT
  Age: 48 Year
  Sex: Female

DRUGS (11)
  1. FISH OIL [Concomitant]
     Active Substance: FISH OIL
  2. CALCIUM [Concomitant]
     Active Substance: CALCIUM
  3. TYLENOL [Concomitant]
     Active Substance: ACETAMINOPHEN
  4. ENBREL [Suspect]
     Active Substance: ETANERCEPT
     Indication: RHEUMATOID ARTHRITIS
     Dosage: ?          OTHER FREQUENCY:EVERY WEEK;?
     Route: 058
  5. FOLIC ACID. [Concomitant]
     Active Substance: FOLIC ACID
  6. MELOXICAM. [Concomitant]
     Active Substance: MELOXICAM
  7. METHOTREXATE. [Concomitant]
     Active Substance: METHOTREXATE
  8. HCTZ [Concomitant]
     Active Substance: HYDROCHLOROTHIAZIDE
  9. OMEPRAZOLE. [Concomitant]
     Active Substance: OMEPRAZOLE
  10. PREDNISONE. [Concomitant]
     Active Substance: PREDNISONE
  11. TUMERIC [Concomitant]
     Active Substance: HERBALS\TURMERIC

REACTIONS (4)
  - Drug dose omission [None]
  - Incorrect dose administered [None]
  - Injection site extravasation [None]
  - Cholecystectomy [None]

NARRATIVE: CASE EVENT DATE: 20180717
